FAERS Safety Report 12937709 (Version 2)
Quarter: 2017Q1

REPORT INFORMATION
  Report Type: Report from Study
  Country: CA (occurrence: CA)
  Receive Date: 20161114
  Receipt Date: 20170210
  Transmission Date: 20170428
  Serious: Yes (Other)
  Sender: FDA-Public Use
  Company Number: CA-AMGEN-CANSL2016156387

PATIENT
  Age: 74 Year
  Sex: Female
  Weight: 57 kg

DRUGS (8)
  1. RABEPRAZOLE [Concomitant]
     Active Substance: RABEPRAZOLE
     Dosage: 20 MG, QD, THREE PILLS A DAY
  2. VITAMIN D [Concomitant]
     Active Substance: CHOLECALCIFEROL
  3. PROLIA [Suspect]
     Active Substance: DENOSUMAB
     Indication: PRODUCT USED FOR UNKNOWN INDICATION
     Dosage: UNK, Q6MO
     Route: 065
     Dates: start: 20121019
  4. ASA [Concomitant]
     Active Substance: ASPIRIN
     Dosage: 81 MG, UNK
  5. PROBIOTIC [Concomitant]
     Active Substance: PROBIOTICS NOS
  6. LIPITOR [Concomitant]
     Active Substance: ATORVASTATIN CALCIUM
     Dosage: 10 MG, UNK
  7. CALCIUM [Concomitant]
     Active Substance: CALCIUM
  8. VITAMIN B12 [Concomitant]
     Active Substance: CYANOCOBALAMIN

REACTIONS (4)
  - Dysphagia [Unknown]
  - Lip swelling [Unknown]
  - Herpes zoster [Recovered/Resolved]
  - Urticaria [Unknown]

NARRATIVE: CASE EVENT DATE: 20160823
